FAERS Safety Report 9335655 (Version 1)
Quarter: 2013Q2

REPORT INFORMATION
  Report Type: Spontaneous
  Country: FR (occurrence: FR)
  Receive Date: 20130605
  Receipt Date: 20130605
  Transmission Date: 20140414
  Serious: Yes (Other)
  Sender: FDA-Public Use
  Company Number: FR-JNJFOC-20130522361

PATIENT
  Age: 5 Month
  Sex: Female

DRUGS (1)
  1. KETODERM [Suspect]
     Indication: SEBORRHOEIC DERMATITIS
     Route: 061
     Dates: start: 20130326

REACTIONS (2)
  - Conjunctival irritation [Recovered/Resolved]
  - Accidental exposure to product [Recovered/Resolved]
